FAERS Safety Report 7553285 (Version 2)
Quarter: 2014Q3

REPORT INFORMATION
  Report Type: Spontaneous
  Country: IT (occurrence: None)
  Receive Date: 20100816
  Receipt Date: 20140822
  Transmission Date: 20150326
  Serious: Yes (Hospitalization)
  Sender: FDA-Public Use
  Company Number: 662533

PATIENT
  Age: 90 Year
  Sex: Female

DRUGS (4)
  1. CLEXANE [Suspect]
     Active Substance: ENOXAPARIN SODIUM
     Indication: DEEP VEIN THROMBOSIS
     Dosage: 4000 IU INTERNATIONAL UNIT(S), SUBCUTANEOUS
     Route: 058
     Dates: start: 20100430, end: 20100519
  2. AUGMENTIN [Concomitant]
     Active Substance: AMOXICILLIN\CLAVULANATE POTASSIUM
  3. VANCOMYCIN HYDROCHLORIDE. [Suspect]
     Active Substance: VANCOMYCIN HYDROCHLORIDE
     Indication: POSTOPERATIVE WOUND INFECTION
     Dosage: 2 G (GRAM(S), INTRAVENOUS
     Route: 042
     Dates: start: 20100430, end: 20100503
  4. GLAZIDIM [Concomitant]
     Active Substance: CEFTAZIDIME

REACTIONS (2)
  - Dermatitis exfoliative [None]
  - Drug hypersensitivity [None]

NARRATIVE: CASE EVENT DATE: 20100430
